FAERS Safety Report 10329687 (Version 1)
Quarter: 2014Q3

REPORT INFORMATION
  Report Type: Spontaneous
  Country: US (occurrence: US)
  Receive Date: 20140721
  Receipt Date: 20140721
  Transmission Date: 20150326
  Serious: Yes (Hospitalization, Other)
  Sender: FDA-Public Use
  Company Number: PHEH2014US014162

PATIENT
  Age: 73 Year
  Sex: Male

DRUGS (20)
  1. DIALYVITE [Concomitant]
     Dosage: UNK UKN, UNK
  2. UBIQUINONE [Concomitant]
     Dosage: 200 MG PER DAY
  3. THERALOC [Concomitant]
     Dosage: UNK UKN, UNK
  4. ZINC [Concomitant]
     Active Substance: ZINC\ZINC CHLORIDE
     Dosage: UNK UKN, UNK
  5. EXELON PATCH [Suspect]
     Active Substance: RIVASTIGMINE
     Dosage: 9.5 MG, UNK
     Route: 062
  6. FOLIC ACID. [Concomitant]
     Active Substance: FOLIC ACID
     Dosage: UNK UKN, UNK
  7. CHROMIUM [Concomitant]
     Active Substance: CHROMIC CHLORIDE\CHROMIUM
     Dosage: UNK UKN, UNK
  8. ARMOUR THYROID [Concomitant]
     Active Substance: THYROID, PORCINE\THYROID, UNSPECIFIED
     Dosage: 8 MG, QID
  9. EXELON PATCH [Suspect]
     Active Substance: RIVASTIGMINE
     Dosage: 4.6 MG, UNK
     Route: 062
  10. CHOLECALCIFEROL [Concomitant]
     Active Substance: CHOLECALCIFEROL
     Dosage: UNK UKN, UNK
  11. NIACIN. [Concomitant]
     Active Substance: NIACIN
     Dosage: 500 MG, BID
  12. RANVIL [Concomitant]
     Dosage: 800 MG, UNK
  13. LISINOPRIL. [Concomitant]
     Active Substance: LISINOPRIL
     Dosage: UNK UKN, UNK
  14. FINASTERIDE. [Concomitant]
     Active Substance: FINASTERIDE
     Dosage: 5 MG, UNK
  15. HYDROCODONE ACETAMINOPHEN [Concomitant]
     Active Substance: ACETAMINOPHEN\HYDROCODONE BITARTRATE
     Dosage: UNK UKN, UNK
  16. MELATONIN [Concomitant]
     Active Substance: MELATONIN
     Dosage: 2 MG, UNK
  17. CARVEDILOL. [Concomitant]
     Active Substance: CARVEDILOL
     Dosage: 6.25 MG, BID
  18. OMEPRAZOLE. [Concomitant]
     Active Substance: OMEPRAZOLE
     Dosage: UNK UKN, UNK
  19. PANCRELIPASE [Concomitant]
     Active Substance: PANCRELIPASE
     Dosage: UNK UKN, UNK
  20. SENSIPAR [Concomitant]
     Active Substance: CINACALCET HYDROCHLORIDE
     Dosage: 30 MG PER DAY

REACTIONS (11)
  - Nausea [Unknown]
  - Abnormal behaviour [Unknown]
  - Cholelithiasis [Unknown]
  - Anosmia [Unknown]
  - Hypertension [Unknown]
  - Diarrhoea [Unknown]
  - Accident [Unknown]
  - Visual impairment [Unknown]
  - Hallucination [Unknown]
  - Nightmare [Unknown]
  - Vomiting [Unknown]

NARRATIVE: CASE EVENT DATE: 2013
